FAERS Safety Report 24452329 (Version 1)
Quarter: 2024Q4

REPORT INFORMATION
  Report Type: Spontaneous
  Country: US (occurrence: US)
  Receive Date: 20241017
  Receipt Date: 20241017
  Transmission Date: 20250115
  Serious: Yes (Other)
  Sender: SANOFI AVENTIS
  Company Number: US-SA-2024SA289722

PATIENT
  Sex: Male

DRUGS (5)
  1. AMLODIPINE [Suspect]
     Active Substance: AMLODIPINE BESYLATE
     Dosage: UNK
  2. FLOMAX [Suspect]
     Active Substance: TAMSULOSIN HYDROCHLORIDE
     Dosage: UNK
  3. LOSARTAN [Suspect]
     Active Substance: LOSARTAN
     Dosage: 100 MG
  4. LOSARTAN [Suspect]
     Active Substance: LOSARTAN
     Dosage: 50 MG
  5. LOSARTAN [Suspect]
     Active Substance: LOSARTAN
     Dosage: 100 MG

REACTIONS (5)
  - Cardiac operation [Unknown]
  - Aortic valve replacement [Unknown]
  - Peripheral swelling [Recovered/Resolved]
  - Blood pressure fluctuation [Unknown]
  - Dizziness [Unknown]

NARRATIVE: CASE EVENT DATE: 20070101
